FAERS Safety Report 7439955-X (Version None)
Quarter: 2011Q2

REPORT INFORMATION
  Report Type: 
  Country: None (occurrence: None)
  Receive Date: 20110427
  Receipt Date: 20110414
  Transmission Date: 20111010
  Serious: Yes (Other)
  Sender: FDA-Public Use
  Company Number: PHHY2011CH26676

PATIENT
  Age: 71 Year
  Sex: Male

DRUGS (4)
  1. ASPIRIN [Concomitant]
  2. RASILEZ [Suspect]
     Dosage: 150 MG DAILY
     Dates: start: 20110201
  3. ATACAND HCT [Concomitant]
     Dosage: 16/12.5 MG DAILY DOSE
     Dates: start: 20110201, end: 20110328
  4. ATENOLOL [Concomitant]
     Dosage: 25 MG DAILY

REACTIONS (2)
  - DIARRHOEA [None]
  - ARRHYTHMIA [None]
